FAERS Safety Report 9178020 (Version 1)
Quarter: 2013Q1

REPORT INFORMATION
  Report Type: Spontaneous
  Country: FR (occurrence: FR)
  Receive Date: 20130321
  Receipt Date: 20130321
  Transmission Date: 20140127
  Serious: Yes (Hospitalization)
  Sender: FDA-Public Use
  Company Number: FR-ASTRAZENECA-2013SE16980

PATIENT
  Age: 25197 Day
  Sex: Male

DRUGS (10)
  1. INEXIUM [Suspect]
     Route: 048
     Dates: start: 20130128, end: 20130227
  2. CRESTOR [Suspect]
     Route: 048
     Dates: start: 20130125, end: 20130222
  3. SEROPLEX [Suspect]
     Route: 048
     Dates: start: 20130207, end: 20130213
  4. PLAVIX [Suspect]
     Route: 048
     Dates: start: 20130204, end: 20130213
  5. PARACETAMOL MACOPHARMA (NON AZ PRODUCT) [Suspect]
     Route: 042
     Dates: start: 20130209, end: 20130213
  6. CALCIPARINE [Suspect]
     Route: 058
     Dates: start: 20130129, end: 20130222
  7. CLAMOXYL [Suspect]
     Indication: HELICOBACTER INFECTION
     Route: 048
     Dates: start: 20130206, end: 20130216
  8. ZECLAR [Suspect]
     Indication: HELICOBACTER INFECTION
     Route: 048
     Dates: start: 20130206, end: 20130216
  9. INSPRA [Suspect]
     Route: 048
     Dates: start: 20130202, end: 20130222
  10. KARDEGIC [Suspect]
     Route: 048
     Dates: start: 20130213, end: 20130222

REACTIONS (3)
  - Neutropenia [Recovering/Resolving]
  - Thrombocytopenia [Recovering/Resolving]
  - Anaemia [Unknown]
